FAERS Safety Report 4377634-6 (Version None)
Quarter: 2004Q2

REPORT INFORMATION
  Report Type: 
  Country: None (occurrence: None)
  Receive Date: 20040615
  Receipt Date: 20040603
  Transmission Date: 20050107
  Serious: Yes (Other)
  Sender: FDA-Public Use
  Company Number: PHBS2004BR07446

PATIENT
  Age: 60 Year
  Sex: Female
  Weight: 60 kg

DRUGS (2)
  1. MELLARIL [Suspect]
     Indication: PSYCHOTIC DISORDER
     Dosage: 25 MG/D
     Route: 048
     Dates: start: 20040501
  2. INSULIN [Concomitant]
     Indication: DIABETES MELLITUS
     Dosage: 50 IU/D
     Route: 042

REACTIONS (1)
  - HYPERGLYCAEMIA [None]
